FAERS Safety Report 11172808 (Version 1)
Quarter: 2015Q2

REPORT INFORMATION
  Report Type: Spontaneous
  Country: US (occurrence: US)
  Receive Date: 20150608
  Receipt Date: 20150608
  Transmission Date: 20150821
  Serious: Yes (Hospitalization)
  Sender: FDA-Public Use
  Company Number: 2015SP001927

PATIENT
  Sex: Female

DRUGS (7)
  1. ALL OTHER THERAPEUTIC PRODUCTS [Concomitant]
     Active Substance: UNSPECIFIED INGREDIENT
     Indication: HYPOMETABOLISM
  2. LATUDA [Suspect]
     Active Substance: LURASIDONE HYDROCHLORIDE
     Route: 048
  3. HALCION [Concomitant]
     Active Substance: TRIAZOLAM
  4. DEXILANT [Concomitant]
     Active Substance: DEXLANSOPRAZOLE
  5. LUNESTA [Concomitant]
     Active Substance: ESZOPICLONE
  6. ANTIEPILEPTICS [Concomitant]
     Active Substance: UNSPECIFIED INGREDIENT
  7. AMBIEN [Concomitant]
     Active Substance: ZOLPIDEM TARTRATE

REACTIONS (3)
  - Psychotic disorder [Unknown]
  - Insomnia [Unknown]
  - Headache [Not Recovered/Not Resolved]
